FAERS Safety Report 12967636 (Version 7)
Quarter: 2020Q3

REPORT INFORMATION
  Report Type: Spontaneous
  Country: US (occurrence: US)
  Receive Date: 20161123
  Receipt Date: 20200910
  Transmission Date: 20201102
  Serious: Yes (Congenital Anomaly, Other)
  Sender: FDA-Public Use
  Company Number: PHEH2016US030520

PATIENT
  Sex: Male

DRUGS (4)
  1. ZOFRAN [Suspect]
     Active Substance: ONDANSETRON HYDROCHLORIDE
     Indication: FOETAL EXPOSURE DURING PREGNANCY
     Route: 064
  2. ZOFRAN [Suspect]
     Active Substance: ONDANSETRON HYDROCHLORIDE
     Indication: FOETAL EXPOSURE DURING PREGNANCY
     Route: 064
  3. ZOFRAN ODT [Suspect]
     Active Substance: ONDANSETRON HYDROCHLORIDE
     Indication: FOETAL EXPOSURE DURING PREGNANCY
     Route: 064
  4. ONDANSETRON [Suspect]
     Active Substance: ONDANSETRON
     Indication: FOETAL EXPOSURE DURING PREGNANCY
     Dosage: MOTHER DOSE: 30 UNK, EVERY 6 HOURS (Q6H), PRN
     Route: 064

REACTIONS (23)
  - Congenital pulmonary valve atresia [Unknown]
  - Dyspepsia [Unknown]
  - Cleft lip [Unknown]
  - Multiple congenital abnormalities [Unknown]
  - Anxiety [Unknown]
  - Migraine [Unknown]
  - Cyanosis [Unknown]
  - Hypoplastic left heart syndrome [Unknown]
  - Heart injury [Unknown]
  - Congenital anomaly [Unknown]
  - Hypoplastic right heart syndrome [Unknown]
  - Emotional distress [Unknown]
  - Attention deficit hyperactivity disorder [Unknown]
  - Gastrointestinal disorder [Unknown]
  - Foetal exposure during pregnancy [Unknown]
  - Pain [Unknown]
  - Nausea [Unknown]
  - Cleft palate [Unknown]
  - Right ventricle outflow tract obstruction [Unknown]
  - Hypertension [Unknown]
  - Tricuspid valve incompetence [Unknown]
  - Injury [Unknown]
  - Anhedonia [Unknown]
